FAERS Safety Report 26119310 (Version 1)
Quarter: 2025Q4

REPORT INFORMATION
  Report Type: Spontaneous
  Country: CN (occurrence: CN)
  Receive Date: 20251204
  Receipt Date: 20251204
  Transmission Date: 20260118
  Serious: Yes (Other)
  Sender: SANDOZ
  Company Number: CN-SANDOZ-SDZ2025CN090421

PATIENT
  Age: 62 Year
  Sex: Female
  Weight: 55.4 kg

DRUGS (1)
  1. ZOLEDRONIC ACID [Suspect]
     Active Substance: ZOLEDRONIC ACID
     Indication: Osteoporosis
     Dosage: 5 MG, QD
     Route: 042
     Dates: start: 20251109, end: 20251109

REACTIONS (6)
  - Retching [Recovering/Resolving]
  - Hypertension [Recovering/Resolving]
  - Nausea [Recovering/Resolving]
  - Pyrexia [Recovered/Resolved]
  - Myalgia [Recovered/Resolved]
  - Fatigue [Recovering/Resolving]

NARRATIVE: CASE EVENT DATE: 20251110
